FAERS Safety Report 12283882 (Version 1)
Quarter: 2016Q2

REPORT INFORMATION
  Report Type: Spontaneous
  Country: US (occurrence: US)
  Receive Date: 20160419
  Receipt Date: 20160419
  Transmission Date: 20160815
  Serious: No
  Sender: FDA-Public Use
  Company Number: US-BANPHARM-20154300

PATIENT
  Age: 80 Year
  Sex: Female
  Weight: 99.79 kg

DRUGS (3)
  1. BAYER LOW DOSE [Concomitant]
     Active Substance: ASPIRIN
  2. WATER PILL [Concomitant]
     Active Substance: UNSPECIFIED INGREDIENT
  3. ALEVE [Suspect]
     Active Substance: NAPROXEN SODIUM
     Indication: ARTHRITIS
     Dosage: 1 DF, Q12H,
     Route: 048

REACTIONS (1)
  - Drug ineffective [Unknown]

NARRATIVE: CASE EVENT DATE: 20150930
